FAERS Safety Report 10494229 (Version 2)
Quarter: 2014Q4

REPORT INFORMATION
  Report Type: Spontaneous
  Country: US (occurrence: None)
  Receive Date: 20141001
  Receipt Date: 20141009
  Transmission Date: 20150528
  Serious: Yes (Death, Other)
  Sender: FDA-Public Use
  Company Number: ADR-2014-01783

PATIENT
  Age: 62 Year
  Sex: Male
  Weight: 87.09 kg

DRUGS (2)
  1. MORPHINE INTRATHECAL [Suspect]
     Active Substance: MORPHINE
  2. COMPOUNDED BACLOFEN INTRATHECAL [Suspect]
     Active Substance: BACLOFEN
     Indication: MUSCLE SPASTICITY
     Dosage: 60 MCG/ML

REACTIONS (5)
  - Cardiac disorder [None]
  - Cardio-respiratory arrest [None]
  - Hypotension [None]
  - Procedural complication [None]
  - Oxygen saturation decreased [None]

NARRATIVE: CASE EVENT DATE: 20140923
